FAERS Safety Report 8589333-5 (Version None)
Quarter: 2012Q3

REPORT INFORMATION
  Report Type: 
  Country: None (occurrence: None)
  Receive Date: 20120813
  Receipt Date: 20120731
  Transmission Date: 20120928
  Serious: Yes (Hospitalization)
  Sender: FDA-Public Use
  Company Number: GB-ELI_LILLY_AND_COMPANY-GB201008003625

PATIENT
  Sex: Male
  Weight: 66.6 kg

DRUGS (15)
  1. CISPLATIN [Suspect]
     Indication: NON-SMALL CELL LUNG CANCER
     Dosage: 134 MG, OTHER
     Route: 042
     Dates: start: 20100714, end: 20100804
  2. LANSOPRAZOLE [Concomitant]
     Dosage: 30 MG, DAILY (1/D)
     Dates: start: 20100731
  3. MORPHINE [Concomitant]
     Dates: start: 20100816
  4. FUROSEMIDE [Concomitant]
     Dosage: 20 MG, UNK
     Route: 048
     Dates: start: 20100819
  5. ONDANSETRON [Concomitant]
     Dosage: 8 MG, UNK
     Dates: start: 20100714
  6. DEXAMETHASONE [Concomitant]
     Dosage: 2 MG, UNK
     Dates: start: 20100731
  7. ANADIN [Concomitant]
     Dates: start: 20100521
  8. NECITUMUMAB (11F8) (LY3012211) [Suspect]
     Indication: NON-SMALL CELL LUNG CANCER
     Dosage: 800 MG, OTHER
     Route: 042
     Dates: start: 20100714
  9. METOCLOPRAMIDE [Concomitant]
  10. NITROGLYCERIN [Concomitant]
     Route: 060
     Dates: start: 20100816
  11. GEMCITABINE HYDROCHLORIDE [Suspect]
     Indication: NON-SMALL CELL LUNG CANCER
     Dosage: 2242 MG, OTHER
     Route: 042
     Dates: start: 20100714
  12. AQUEOUS CREAM [Concomitant]
     Dosage: UNK, AS NEEDED
     Route: 061
     Dates: start: 20100724
  13. ENSURE                             /06184901/ [Concomitant]
     Indication: SUPPLEMENTATION THERAPY
  14. ACETAMINOPHEN [Concomitant]
     Dosage: 1 G, AS NEEDED
     Dates: start: 20100820
  15. DOXYCYCLINE HCL [Concomitant]
     Dosage: 100 MG, UNK
     Route: 048
     Dates: start: 20100812

REACTIONS (3)
  - ACUTE MYOCARDIAL INFARCTION [None]
  - DEHYDRATION [None]
  - PNEUMONIA [None]
